FAERS Safety Report 4360448-0 (Version None)
Quarter: 2004Q2

REPORT INFORMATION
  Report Type: 
  Country: None (occurrence: None)
  Receive Date: 20040514
  Receipt Date: 20040503
  Transmission Date: 20050107
  Serious: Yes (Hospitalization, Other)
  Sender: FDA-Public Use
  Company Number: 2004009325

PATIENT
  Sex: Male
  Weight: 65.318 kg

DRUGS (3)
  1. TROVAN [Suspect]
     Indication: SINUSITIS
     Dosage: 200 MG (UNK, QD), UNKNOWN (SEE IMAGE)
     Route: 065
     Dates: start: 19990604, end: 19990606
  2. GINKGO BILOBA (GINKGO BILOBA) [Suspect]
     Indication: ILL-DEFINED DISORDER
     Dosage: UNK (UNK, UNKNOWN) UNKNOWN (SEE IMAGE)
     Route: 065
  3. AMOXICILLIN [Concomitant]

REACTIONS (31)
  - ABDOMINAL PAIN [None]
  - ACUTE SINUSITIS [None]
  - ANOREXIA [None]
  - ASPARTATE AMINOTRANSFERASE INCREASED [None]
  - ASTHENIA [None]
  - BLOOD ALBUMIN DECREASED [None]
  - BLOOD ALKALINE PHOSPHATASE INCREASED [None]
  - BLOOD CHLORIDE DECREASED [None]
  - BLOOD SODIUM DECREASED [None]
  - COUGH [None]
  - DEHYDRATION [None]
  - DIZZINESS [None]
  - DYSPNOEA [None]
  - GALLBLADDER DISORDER [None]
  - HEART RATE INCREASED [None]
  - HEPATIC FAILURE [None]
  - HEPATOCELLULAR DAMAGE [None]
  - INFLUENZA LIKE ILLNESS [None]
  - JAUNDICE [None]
  - LIVER FUNCTION TEST ABNORMAL [None]
  - LIVER TRANSPLANT [None]
  - NASAL CONGESTION [None]
  - NAUSEA [None]
  - PAIN [None]
  - PLATELET COUNT DECREASED [None]
  - PROTEIN TOTAL DECREASED [None]
  - PYREXIA [None]
  - RESPIRATORY RATE INCREASED [None]
  - VIRAL INFECTION [None]
  - VOMITING [None]
  - WEIGHT DECREASED [None]
